FAERS Safety Report 8889980 (Version 1)
Quarter: 2012Q4

REPORT INFORMATION
  Report Type: 
  Country: TN (occurrence: TN)
  Receive Date: 20121106
  Receipt Date: 20121106
  Transmission Date: 20130627
  Serious: Yes (Hospitalization, Other)
  Sender: FDA-Public Use
  Company Number: TN-PAR PHARMACEUTICAL, INC-2012SCPR004694

PATIENT

DRUGS (2)
  1. CIPROFLOXACIN ER [Suspect]
     Indication: KIDNEY INFECTION
     Dosage: UNK, Unknown
     Route: 048
  2. NIFLUMIC ACID [Suspect]
     Indication: KIDNEY INFECTION
     Dosage: UNK, Unknown
     Route: 054

REACTIONS (3)
  - Renal papillary necrosis [Unknown]
  - Renal failure acute [Unknown]
  - Nephrolithiasis [Unknown]
